FAERS Safety Report 4377553-5 (Version None)
Quarter: 2004Q2

REPORT INFORMATION
  Report Type: 
  Country: None (occurrence: None)
  Receive Date: 20040609
  Receipt Date: 20040416
  Transmission Date: 20050107
  Serious: No
  Sender: FDA-Public Use
  Company Number: PHEH2004US04357

PATIENT
  Age: 61 Year
  Sex: Female

DRUGS (4)
  1. GLEEVEC [Suspect]
     Indication: CHRONIC MYELOID LEUKAEMIA
     Dates: start: 20010701
  2. PRILOSEC [Concomitant]
  3. DILTIAZEM [Concomitant]
  4. MULTIVITAMIN [Concomitant]

REACTIONS (2)
  - BURSITIS [None]
  - TOOTH DISCOLOURATION [None]
